FAERS Safety Report 8872640 (Version 1)
Quarter: 2012Q4

REPORT INFORMATION
  Report Type: 
  Country: IT (occurrence: IT)
  Receive Date: 20121030
  Receipt Date: 20121030
  Transmission Date: 20130627
  Serious: Yes (Hospitalization)
  Sender: FDA-Public Use
  Company Number: IT-TEVA-365590ISR

PATIENT
  Age: 76 Year
  Sex: Male
  Weight: 60 kg

DRUGS (8)
  1. TICLOPIDINE [Suspect]
     Indication: CARDIAC DISORDER
     Route: 048
     Dates: start: 20120601, end: 20121008
  2. LASITONE [Concomitant]
     Indication: CARDIOVASCULAR EVENT PROPHYLAXIS
     Dosage: Dose: furosemide 25 mg/ spironolactone 37 mg
     Route: 048
  3. LASITONE [Concomitant]
     Route: 048
  4. SERETIDE [Concomitant]
     Dosage: Dose: salmeterol 25mcg/ fluticasone propionate 250 mcg
  5. SERETIDE [Concomitant]
  6. NIFEREX [Concomitant]
     Indication: ANAEMIA
     Route: 048
     Dates: start: 20120717, end: 20121008
  7. PANTORC [Concomitant]
     Indication: PROPHYLAXIS
     Route: 048
  8. AMIODARONE CLORIDRATO [Concomitant]
     Indication: CARDIAC DISORDER

REACTIONS (1)
  - Melaena [Recovered/Resolved]
